FAERS Safety Report 24552882 (Version 1)
Quarter: 2024Q4

REPORT INFORMATION
  Report Type: Spontaneous
  Country: US (occurrence: US)
  Receive Date: 20241027
  Receipt Date: 20241027
  Transmission Date: 20250114
  Serious: Yes (Hospitalization)
  Sender: ROCHE
  Company Number: US-ROCHE-10000116055

PATIENT
  Age: 14 Year
  Sex: Male

DRUGS (2)
  1. NUTROPIN [Suspect]
     Active Substance: SOMATROPIN
     Indication: Hypopituitarism
     Dosage: ONCE A DAY IN THE EVENING
     Route: 058
  2. OMNITROPE [Concomitant]
     Active Substance: SOMATROPIN

REACTIONS (1)
  - Clavicle fracture [Unknown]
